FAERS Safety Report 10733788 (Version 5)
Quarter: 2015Q3

REPORT INFORMATION
  Report Type: Report from Study
  Country: TW (occurrence: TW)
  Receive Date: 20150123
  Receipt Date: 20150706
  Transmission Date: 20151125
  Serious: Yes (Other)
  Sender: FDA-Public Use
  Company Number: TW-BAYER-2015-008329

PATIENT
  Age: 62 Year
  Sex: Male
  Weight: 63.7 kg

DRUGS (9)
  1. REFAMETINIB [Suspect]
     Active Substance: REFAMETINIB
     Indication: HEPATOCELLULAR CARCINOMA
     Dosage: 30 MG, BID
     Route: 048
     Dates: start: 20141201, end: 20141210
  2. REFAMETINIB [Suspect]
     Active Substance: REFAMETINIB
     Indication: HEPATOCELLULAR CARCINOMA
     Dosage: 30 MG, BID
     Route: 048
     Dates: start: 20141219, end: 20141219
  3. SORAFENIB (RAF KINASE INHIBITOR) [Suspect]
     Active Substance: SORAFENIB
     Indication: HEPATOCELLULAR CARCINOMA
     Dosage: 400 MG, QD
     Route: 048
     Dates: start: 20141021, end: 20141021
  4. SORAFENIB (RAF KINASE INHIBITOR) [Suspect]
     Active Substance: SORAFENIB
     Indication: HEPATOCELLULAR CARCINOMA
     Dosage: 200 MG IN THE MORNING+400 MG IN THE EVENING=600MG
     Route: 048
     Dates: start: 20141017, end: 20141019
  5. REFAMETINIB [Suspect]
     Active Substance: REFAMETINIB
     Indication: HEPATOCELLULAR CARCINOMA
     Dosage: 50 MG, BID
     Route: 048
     Dates: start: 20141017, end: 20141019
  6. REFAMETINIB [Suspect]
     Active Substance: REFAMETINIB
     Indication: HEPATOCELLULAR CARCINOMA
     Dosage: 30 MG, BID
     Route: 048
     Dates: start: 20141111, end: 20141119
  7. SORAFENIB (RAF KINASE INHIBITOR) [Suspect]
     Active Substance: SORAFENIB
     Indication: HEPATOCELLULAR CARCINOMA
     Dosage: 400 MG, QD
     Route: 048
     Dates: start: 20141111, end: 20141219
  8. REFAMETINIB [Suspect]
     Active Substance: REFAMETINIB
     Indication: HEPATOCELLULAR CARCINOMA
     Dosage: 30 MG, BID
     Route: 048
     Dates: start: 20141212, end: 20141217
  9. REFAMETINIB [Suspect]
     Active Substance: REFAMETINIB
     Indication: HEPATOCELLULAR CARCINOMA
     Dosage: 50 MG, BID
     Route: 048
     Dates: start: 20141025, end: 20141030

REACTIONS (2)
  - Blood creatine phosphokinase increased [Recovered/Resolved]
  - Blood creatine phosphokinase increased [Recovered/Resolved]

NARRATIVE: CASE EVENT DATE: 20141211
